FAERS Safety Report 24556668 (Version 1)
Quarter: 2024Q4

REPORT INFORMATION
  Report Type: Spontaneous
  Country: CN (occurrence: CN)
  Receive Date: 20241028
  Receipt Date: 20241028
  Transmission Date: 20250114
  Serious: Yes (Other)
  Sender: BAXTER
  Company Number: None

PATIENT
  Age: 61 Year
  Sex: Female
  Weight: 70 kg

DRUGS (16)
  1. MANNITOL [Suspect]
     Active Substance: MANNITOL
     Indication: Localised oedema
     Dosage: (DOSAGE FORM: INJECTION SOLUTION) 100 ML QD
     Route: 041
     Dates: start: 20240916, end: 20240925
  2. CEFUROXIME SODIUM [Suspect]
     Active Substance: CEFUROXIME SODIUM
     Indication: Prophylaxis
     Dosage: 1.5 G OF CEFUROXIME SODIUM FOR INJECTION DILUTED IN 100 ML OF 0.9% SODIUM CHLORIDE INJECTION BID
     Route: 041
     Dates: start: 20240920, end: 20240921
  3. POLYPEPTIDES [Suspect]
     Active Substance: POLYPEPTIDES
     Indication: Ankle fracture
     Dosage: 8 MG OF CERVUS AND CUCUMIS POLYPEPTIDE DILUTED IN 250 ML OF 0.9% SODIUM CHLORIDE INJECTION QD
     Route: 041
     Dates: start: 20240916, end: 20240924
  4. INSULIN ASPART\INSULIN DEGLUDEC [Suspect]
     Active Substance: INSULIN ASPART\INSULIN DEGLUDEC
     Indication: Diabetes mellitus
     Dosage: 16 UNITS BID
     Route: 058
     Dates: start: 20240916, end: 20241015
  5. SODIUM CHLORIDE [Suspect]
     Active Substance: SODIUM CHLORIDE
     Indication: Medication dilution
     Dosage: (DOSAGE FORM: INJECTION SOLUTION) 250 ML OF 0.9% SODIUM CHLORIDE INJECTION USED TO DILUTE 8 MG CERVU
     Route: 041
     Dates: start: 20240916, end: 20240924
  6. SODIUM CHLORIDE [Suspect]
     Active Substance: SODIUM CHLORIDE
     Dosage: (DOSAGE FORM: INJECTION SOLUTION) 100 ML OF 0.9% SODIUM CHLORIDE INJECTION USED TO DILUTE 1.5 G CEFU
     Route: 041
     Dates: start: 20240920, end: 20240921
  7. SODIUM CHLORIDE [Suspect]
     Active Substance: SODIUM CHLORIDE
     Dosage: 100 ML OF 0.9% SODIUM CHLORIDE INJECTION USED TO DILUTE 40 MG METHYLPREDNISOLONE INJECTION QD
     Route: 041
     Dates: start: 20240925, end: 20240927
  8. SODIUM CHLORIDE [Suspect]
     Active Substance: SODIUM CHLORIDE
     Dosage: 250 ML OF 0.9% SODIUM CHLORIDE INJECTION USED TO DILUTE 20 MG BETAHISTINE INJECTION QD
     Route: 041
     Dates: start: 20240925, end: 20241012
  9. SODIUM CHLORIDE [Suspect]
     Active Substance: SODIUM CHLORIDE
     Dosage: 250 ML OF 0.9% SODIUM CHLORIDE INJECTION DILUTED IN 10 BU BATROXOBIN QD
     Route: 041
     Dates: start: 20240925, end: 20240927
  10. METHYLPREDNISOLONE [Suspect]
     Active Substance: METHYLPREDNISOLONE
     Indication: Adverse event
     Dosage: 40 MG OF METHYLPREDNISOLONE INJECTION DILUTED IN 100 ML OF 0.9% SODIUM CHLORIDE INJECTION QD
     Route: 041
     Dates: start: 20240925, end: 20240927
  11. METHYLCOBALAMIN [Suspect]
     Active Substance: METHYLCOBALAMIN
     Indication: Adverse event
     Dosage: 20 MG QD
     Route: 030
     Dates: start: 20240925, end: 20241015
  12. BETAHISTINE [Suspect]
     Active Substance: BETAHISTINE
     Indication: Adverse event
     Dosage: 20 MG OF BETAHISTINE INJECTION DILUTED IN 250 ML OF 0.9% SODIUM CHLORIDE INJECTION QD
     Route: 041
     Dates: start: 20240925, end: 20241012
  13. BATROXOBIN [Suspect]
     Active Substance: BATROXOBIN
     Indication: Adverse event
     Dosage: 10 BU OF BATROXOBIN DILUTED IN 250 ML OF 0.9% SODIUM CHLORIDE INJECTION QD
     Route: 041
     Dates: start: 20240925, end: 20240927
  14. VITAMIN B1 [Suspect]
     Active Substance: THIAMINE HYDROCHLORIDE
     Indication: Adverse event
     Dosage: 10 MG TID
     Route: 048
     Dates: start: 20240925, end: 20241015
  15. OXYGEN [Suspect]
     Active Substance: OXYGEN
     Indication: Adverse event
     Dosage: (HYPERBARIC OXYGEN THERAPY) AT AN UNSPECIFIED DOSE AND FREQUENCY
     Route: 065
     Dates: start: 20240922, end: 20241004
  16. OXYGEN [Suspect]
     Active Substance: OXYGEN
     Dosage: (HYPERBARIC OXYGEN THERAPY) AT AN UNSPECIFIED DOSE AND FREQUENCY
     Route: 065
     Dates: start: 20241009, end: 20241015

REACTIONS (7)
  - Sudden hearing loss [Not Recovered/Not Resolved]
  - Hypoacusis [Unknown]
  - Ear congestion [Unknown]
  - Mixed deafness [Unknown]
  - Deafness neurosensory [Unknown]
  - Otitis media [Unknown]
  - Middle ear effusion [Unknown]

NARRATIVE: CASE EVENT DATE: 20240921
